FAERS Safety Report 16243366 (Version 2)
Quarter: 2019Q2

REPORT INFORMATION
  Report Type: Spontaneous
  Country: US (occurrence: US)
  Receive Date: 20190426
  Receipt Date: 20190506
  Transmission Date: 20190711
  Serious: Yes (Other)
  Sender: FDA-Public Use
  Company Number: US-PFIZER INC-2019175444

PATIENT
  Age: 74 Year
  Sex: Female

DRUGS (1)
  1. GLYSET [Suspect]
     Active Substance: MIGLITOL
     Dosage: 50 MG, UNK

REACTIONS (2)
  - Product dispensing error [Unknown]
  - Blood glucose increased [Unknown]
